FAERS Safety Report 5103041-4 (Version None)
Quarter: 2006Q3

REPORT INFORMATION
  Report Type: 
  Country: None (occurrence: None)
  Receive Date: 20060908
  Receipt Date: 20060904
  Transmission Date: 20061208
  Serious: Yes (Life-Threatening, Other)
  Sender: FDA-Public Use
  Company Number: 2006S1000178

PATIENT
  Age: 2 Day
  Sex: Male

DRUGS (7)
  1. INOMAX [Suspect]
     Indication: LUNG DISORDER
     Dosage: 5 PPM; INH
     Route: 055
     Dates: start: 20060829
  2. INOMAX [Suspect]
     Indication: PROPHYLAXIS
     Dosage: 5 PPM; INH
     Route: 055
     Dates: start: 20060829
  3. PENICILLIN G [Concomitant]
  4. TOBRAMYCIN [Concomitant]
  5. HYDROCORTISONE (HYRDOCORTISONE) [Concomitant]
  6. AMINOPHYLLINE (AMINOPHYLLINE) [Concomitant]
  7. RANITIDINE [Concomitant]

REACTIONS (9)
  - ACIDOSIS [None]
  - ASPIRATION TRACHEAL ABNORMAL [None]
  - BLOOD PRESSURE DECREASED [None]
  - CEREBRAL HAEMORRHAGE [None]
  - HAEMORRHAGE INTRACRANIAL [None]
  - LUNG INFILTRATION [None]
  - NEONATAL DISORDER [None]
  - PREMATURE BABY [None]
  - PULMONARY HAEMORRHAGE [None]
